FAERS Safety Report 5945153-9 (Version None)
Quarter: 2008Q4

REPORT INFORMATION
  Report Type: 
  Country: None (occurrence: None)
  Receive Date: 20081107
  Receipt Date: 20081031
  Transmission Date: 20090506
  Serious: Yes (Other)
  Sender: FDA-Public Use
  Company Number: A0755280A

PATIENT
  Age: 56 Year
  Sex: Male
  Weight: 81.8 kg

DRUGS (4)
  1. AVANDIA [Suspect]
     Dosage: 4MG PER DAY
     Route: 048
     Dates: start: 20050601, end: 20050808
  2. GLUCOPHAGE [Concomitant]
     Dates: start: 20000207
  3. METFORMIN HCL [Concomitant]
     Dates: start: 20000207
  4. GLYBURIDE [Concomitant]
     Dosage: 3MG PER DAY
     Dates: start: 20000707

REACTIONS (3)
  - CARDIAC FAILURE CONGESTIVE [None]
  - DYSPNOEA [None]
  - MYOCARDIAL INFARCTION [None]
